FAERS Safety Report 9787292 (Version 1)
Quarter: 2013Q4

REPORT INFORMATION
  Report Type: Report from Study
  Country: CA (occurrence: CA)
  Receive Date: 20131230
  Receipt Date: 20131230
  Transmission Date: 20140711
  Serious: Yes (Hospitalization)
  Sender: FDA-Public Use
  Company Number: CA-ROCHE-1326873

PATIENT
  Age: 58 Year
  Sex: Male

DRUGS (22)
  1. RITUXAN [Suspect]
     Indication: RHEUMATOID ARTHRITIS
     Route: 042
     Dates: start: 20130703
  2. ACETAMINOPHEN [Concomitant]
     Indication: PREMEDICATION
     Route: 048
     Dates: start: 20130703
  3. DIPHENHYDRAMINE HCL [Concomitant]
     Indication: PREMEDICATION
     Route: 048
     Dates: start: 20130703
  4. METHYLPREDNISOLONE [Concomitant]
     Indication: PREMEDICATION
     Route: 042
     Dates: start: 20130703
  5. PREDNISONE [Concomitant]
  6. METHOTREXATE [Concomitant]
  7. MORPHINE SULPHATE SR [Concomitant]
  8. SALBUTAMOL [Concomitant]
  9. ATIVAN [Concomitant]
  10. ALENDRONATE [Concomitant]
  11. CHOLECALCIFEROL [Concomitant]
  12. XALATAN [Concomitant]
     Route: 065
  13. LANTUS [Concomitant]
  14. RIFAMPIN [Concomitant]
  15. ADVAIR [Concomitant]
  16. ISONIAZID OR COMPARATOR [Concomitant]
  17. VITAMIN B6 [Concomitant]
  18. FOLIC ACID [Concomitant]
  19. CYMBALTA [Concomitant]
  20. NEURONTIN (CANADA) [Concomitant]
  21. CANESTEN [Concomitant]
     Route: 065
  22. GRAVOL [Concomitant]

REACTIONS (1)
  - Vomiting [Unknown]
